FAERS Safety Report 11135767 (Version 1)
Quarter: 2015Q2

REPORT INFORMATION
  Report Type: Spontaneous
  Country: US (occurrence: None)
  Receive Date: 20150522
  Receipt Date: 20150522
  Transmission Date: 20150821
  Serious: Yes (Other)
  Sender: FDA-Public Use
  Company Number: None

PATIENT
  Age: 51 Year
  Sex: Female
  Weight: 62.14 kg

DRUGS (1)
  1. GENERIC BACTRIM DS [Suspect]
     Active Substance: SULFAMETHOXAZOLE\TRIMETHOPRIM
     Indication: RESPIRATORY TRACT CONGESTION
     Route: 048
     Dates: start: 20150408

REACTIONS (3)
  - Suicidal ideation [None]
  - Depression [None]
  - Hallucination [None]

NARRATIVE: CASE EVENT DATE: 20150408
